FAERS Safety Report 14479882 (Version 2)
Quarter: 2018Q1

REPORT INFORMATION
  Report Type: Report from Study
  Country: US (occurrence: US)
  Receive Date: 20180202
  Receipt Date: 20180208
  Transmission Date: 20180509
  Serious: Yes (Other)
  Sender: FDA-Public Use
  Company Number: US-ASTELLAS-2018US005942

PATIENT
  Sex: Female
  Weight: 48 kg

DRUGS (5)
  1. POTASSIUM CHLORIDE. [Concomitant]
     Active Substance: POTASSIUM CHLORIDE
     Indication: PRODUCT USED FOR UNKNOWN INDICATION
     Dosage: 10 MEQ, TWICE DAILY(2 TABLETS 2 TIMES A DAY)
     Route: 048
  2. ERLOTINIB [Suspect]
     Active Substance: ERLOTINIB
     Indication: LUNG NEOPLASM MALIGNANT
     Route: 048
     Dates: start: 20160827
  3. CEPHALEXIN                         /00145501/ [Concomitant]
     Active Substance: CEPHALEXIN
     Indication: INFECTION PROPHYLAXIS
     Route: 048
  4. MEGESTROL [Concomitant]
     Active Substance: MEGESTROL
     Indication: INCREASED APPETITE
     Dosage: UNK UNK, TWICE DAILY(40MG/ML)
     Route: 048
  5. ONDANSETRON [Concomitant]
     Active Substance: ONDANSETRON
     Indication: NAUSEA
     Route: 048

REACTIONS (8)
  - Hypoaesthesia [Unknown]
  - Rash [Unknown]
  - Deafness [Unknown]
  - Diarrhoea [Unknown]
  - Amnesia [Unknown]
  - Paraesthesia [Unknown]
  - Nephrolithiasis [Unknown]
  - Dry skin [Unknown]
